FAERS Safety Report 16876948 (Version 1)
Quarter: 2019Q4

REPORT INFORMATION
  Report Type: Spontaneous
  Country: AR (occurrence: AR)
  Receive Date: 20191002
  Receipt Date: 20191002
  Transmission Date: 20200122
  Serious: Yes (Other)
  Sender: FDA-Public Use
  Company Number: AR-PFIZER INC-2019398867

PATIENT
  Age: 57 Year
  Sex: Female

DRUGS (1)
  1. IBRANCE [Suspect]
     Active Substance: PALBOCICLIB
     Indication: BREAST CANCER METASTATIC
     Dosage: 125 MG, CYCLIC (DAILY 3X1 SCHEME)
     Dates: start: 20190227, end: 201908

REACTIONS (4)
  - Pain [Not Recovered/Not Resolved]
  - Gait inability [Not Recovered/Not Resolved]
  - Carbohydrate antigen 15-3 increased [Not Recovered/Not Resolved]
  - Bone pain [Not Recovered/Not Resolved]

NARRATIVE: CASE EVENT DATE: 201907
